FAERS Safety Report 7701439-9 (Version None)
Quarter: 2011Q3

REPORT INFORMATION
  Report Type: 
  Country: None (occurrence: None)
  Receive Date: 20110819
  Receipt Date: 20110819
  Transmission Date: 20111222
  Serious: No
  Sender: FDA-Public Use
  Company Number: None

PATIENT

DRUGS (1)
  1. DABIGATRAN [Suspect]
     Indication: ATRIAL FIBRILLATION
     Dates: start: 20110622, end: 20110706

REACTIONS (1)
  - GASTROOESOPHAGEAL REFLUX DISEASE [None]
